FAERS Safety Report 20088634 (Version 1)
Quarter: 2021Q4

REPORT INFORMATION
  Report Type: Spontaneous
  Country: US (occurrence: None)
  Receive Date: 20211119
  Receipt Date: 20211119
  Transmission Date: 20220303
  Serious: No
  Sender: FDA-Public Use
  Company Number: US-Eisai Medical Research-EC-2021-102998

PATIENT
  Age: 57 Year
  Sex: Female

DRUGS (1)
  1. DAYVIGO [Suspect]
     Active Substance: LEMBOREXANT
     Indication: Insomnia
     Route: 048
     Dates: start: 202111, end: 202111

REACTIONS (1)
  - Somnambulism [Recovered/Resolved]

NARRATIVE: CASE EVENT DATE: 20211101
